FAERS Safety Report 23111983 (Version 2)
Quarter: 2023Q4

REPORT INFORMATION
  Report Type: Spontaneous
  Country: PE (occurrence: PE)
  Receive Date: 20231026
  Receipt Date: 20231109
  Transmission Date: 20240110
  Serious: Yes (Life-Threatening, Hospitalization)
  Sender: FDA-Public Use
  Company Number: PE-TEVA-2023-PE-2937279

PATIENT
  Sex: Female

DRUGS (3)
  1. DEXAMETHASONE [Suspect]
     Active Substance: DEXAMETHASONE
     Indication: Maternal therapy to enhance foetal lung maturity
     Route: 064
  2. MAGNESIUM SULFATE [Suspect]
     Active Substance: MAGNESIUM SULFATE\MAGNESIUM SULFATE HEPTAHYDRATE
     Indication: Pre-eclampsia
     Route: 064
  3. NIFEDIPINE [Suspect]
     Active Substance: NIFEDIPINE
     Indication: Pre-eclampsia
     Route: 064

REACTIONS (10)
  - Gastric perforation [Recovered/Resolved]
  - Neonatal respiratory distress [Recovering/Resolving]
  - Pneumoperitoneum [Unknown]
  - Coagulopathy [Unknown]
  - Neonatal hyperglycaemia [Unknown]
  - Hyperchloraemia [Unknown]
  - Hypoalbuminaemia [Unknown]
  - Hypermagnesaemia [Unknown]
  - Weight decrease neonatal [Recovering/Resolving]
  - Foetal exposure during pregnancy [Unknown]
